FAERS Safety Report 17238125 (Version 1)
Quarter: 2020Q1

REPORT INFORMATION
  Report Type: Spontaneous
  Country: US (occurrence: US)
  Receive Date: 20200106
  Receipt Date: 20200106
  Transmission Date: 20200409
  Serious: No
  Sender: FDA-Public Use
  Company Number: US-PACIRA-201900301

PATIENT
  Age: 47 Year
  Sex: Female
  Weight: 120 kg

DRUGS (9)
  1. PROPOFOL. [Concomitant]
     Active Substance: PROPOFOL
     Indication: ANAESTHESIA
     Dosage: UNKNOWN
     Route: 065
     Dates: start: 20190910, end: 20190910
  2. LOVENOX [Concomitant]
     Active Substance: ENOXAPARIN SODIUM
     Indication: PRODUCT USED FOR UNKNOWN INDICATION
     Dosage: SUBCUTANEOUS TO ABDOMEN TWICE DAILY
     Route: 058
  3. EXPAREL [Suspect]
     Active Substance: BUPIVACAINE
     Indication: GASTRECTOMY
     Dosage: 30 ML MIXTURE OF EXPAREL, BUPIVACAINE 0.5%, AND NACL (10 :10 :10) AND EXPANDED WITH 100 NACL
     Route: 058
     Dates: start: 20190910, end: 20190910
  4. BUPIVACAINE. [Concomitant]
     Active Substance: BUPIVACAINE
     Indication: GASTRECTOMY
     Dosage: UNKNOWN
     Route: 065
     Dates: start: 20190910, end: 20190910
  5. NACL [Suspect]
     Active Substance: SODIUM CHLORIDE
     Indication: GASTRECTOMY
     Dosage: 30 ML MIXTURE OF EXPAREL, BUPIVACAINE 0.5%, AND NACL (10 :10 :10) AND EXPANDED WITH 100 NACL
     Route: 058
     Dates: start: 20190910, end: 20190910
  6. KETAMINE [Concomitant]
     Active Substance: KETAMINE
     Indication: ANAESTHESIA
     Dosage: UNKNOWN
     Route: 065
     Dates: start: 20190910, end: 20190910
  7. BUPIVACAINE. [Suspect]
     Active Substance: BUPIVACAINE
     Indication: GASTRECTOMY
     Dosage: 30 ML MIXTURE OF EXPAREL, BUPIVACAINE 0.5%, AND NACL (10 :10 :10) AND EXPANDED WITH 100 NACL
     Route: 058
     Dates: start: 20190910, end: 20190910
  8. LIDOCAINE. [Concomitant]
     Active Substance: LIDOCAINE
     Indication: ANAESTHESIA
     Dosage: UNKNOWN
     Route: 065
     Dates: start: 20190910, end: 20190910
  9. LIDOCAINE. [Concomitant]
     Active Substance: LIDOCAINE
     Indication: ANAESTHESIA
     Dosage: UNKNOWN
     Route: 065
     Dates: start: 20190910, end: 20190910

REACTIONS (2)
  - Injection site urticaria [Unknown]
  - Incision site rash [Not Recovered/Not Resolved]
